FAERS Safety Report 4870214-5 (Version None)
Quarter: 2005Q4

REPORT INFORMATION
  Report Type: 
  Country: None (occurrence: None)
  Receive Date: 20051228
  Receipt Date: 20051216
  Transmission Date: 20060501
  Serious: Yes (Life-Threatening, Hospitalization)
  Sender: FDA-Public Use
  Company Number: JP-2005-025580

PATIENT
  Age: 26 Year
  Sex: Female

DRUGS (2)
  1. PROSCOPE 300(IOPROMIDE) INFUSION [Suspect]
     Indication: COMPUTERISED TOMOGRAM
     Dosage: 95 ML, 1 DOSE; INTRAVENOUS
     Route: 042
     Dates: start: 20051128, end: 20051128
  2. GLUCOSE [Concomitant]

REACTIONS (2)
  - ANAPHYLACTIC SHOCK [None]
  - ARRHYTHMIA [None]
